FAERS Safety Report 24576658 (Version 2)
Quarter: 2024Q4

REPORT INFORMATION
  Report Type: Spontaneous
  Country: ES (occurrence: ES)
  Receive Date: 20241104
  Receipt Date: 20241107
  Transmission Date: 20250115
  Serious: Yes (Other)
  Sender: MERCK
  Company Number: ES-009507513-2410ESP013623

PATIENT
  Age: 57 Year
  Sex: Female

DRUGS (3)
  1. PEMBROLIZUMAB [Suspect]
     Active Substance: PEMBROLIZUMAB
     Indication: Renal cell carcinoma recurrent
     Dosage: UNK
     Dates: start: 20220913
  2. ZOMETA [Suspect]
     Active Substance: ZOLEDRONIC ACID
     Indication: Renal cell carcinoma recurrent
     Dosage: UNK
     Dates: start: 20220913, end: 202304
  3. AXITINIB [Suspect]
     Active Substance: AXITINIB
     Indication: Renal cell carcinoma recurrent
     Dosage: UNK
     Dates: start: 20221004, end: 202304

REACTIONS (4)
  - Radiotherapy to brain [Recovered/Resolved]
  - Radiotherapy [Recovered/Resolved]
  - Nephropathy toxic [Unknown]
  - Off label use [Unknown]

NARRATIVE: CASE EVENT DATE: 20220919
